FAERS Safety Report 7368512-9 (Version None)
Quarter: 2011Q1

REPORT INFORMATION
  Report Type: 
  Country: None (occurrence: None)
  Receive Date: 20110317
  Receipt Date: 20110317
  Transmission Date: 20110831
  Serious: Yes (Other)
  Sender: FDA-Public Use
  Company Number: None

PATIENT
  Age: 52 Year
  Sex: Female
  Weight: 53 kg

DRUGS (11)
  1. VENOFOR INFUSIONS [Concomitant]
  2. ERGOCALCIFEROL [Concomitant]
  3. CITRACAL WITH VIT D [Concomitant]
  4. ESTEROL [Concomitant]
  5. VIVELLE [Concomitant]
  6. VICODIN [Concomitant]
  7. MACROBID [Concomitant]
  8. ZORTRESS [Suspect]
     Dates: start: 20101130, end: 20110314
  9. PROGRAF [Concomitant]
  10. PROMETRIUM [Concomitant]
  11. FISH OIL [Concomitant]

REACTIONS (8)
  - LYMPHOCELE [None]
  - INFECTION [None]
  - HYDRONEPHROSIS [None]
  - PROTEINURIA [None]
  - FLUID RETENTION [None]
  - ANGIOEDEMA [None]
  - ABDOMINAL DISTENSION [None]
  - RESPIRATORY DISORDER [None]
